FAERS Safety Report 20461114 (Version 2)
Quarter: 2022Q1

REPORT INFORMATION
  Report Type: Spontaneous
  Country: US (occurrence: US)
  Receive Date: 20220211
  Receipt Date: 20220214
  Transmission Date: 20220423
  Serious: Yes (Other)
  Sender: FDA-Public Use
  Company Number: US-HRARD-2021000063

PATIENT
  Age: 58 Year
  Sex: Male

DRUGS (1)
  1. MITOTANE [Suspect]
     Active Substance: MITOTANE

REACTIONS (1)
  - Adrenocortical insufficiency acute [Recovered/Resolved]
